FAERS Safety Report 21596896 (Version 1)
Quarter: 2022Q4

REPORT INFORMATION
  Report Type: Report from Study
  Country: US (occurrence: US)
  Receive Date: 20221115
  Receipt Date: 20221115
  Transmission Date: 20230113
  Serious: Yes (Other)
  Sender: FDA-Public Use
  Company Number: US-MYLANLABS-202200434532

PATIENT
  Sex: Female

DRUGS (1)
  1. LYRICA [Suspect]
     Active Substance: PREGABALIN
     Indication: Neuropathy peripheral
     Dosage: 200 MILLIGRAM, TID (200 MG, 3X/DAY)
     Route: 048

REACTIONS (5)
  - Paraplegia [Unknown]
  - Illness [Unknown]
  - Neuralgia [Unknown]
  - Pain in extremity [Unknown]
  - Pain [Unknown]
